FAERS Safety Report 12060708 (Version 1)
Quarter: 2016Q1

REPORT INFORMATION
  Report Type: Spontaneous
  Country: CA (occurrence: CA)
  Receive Date: 20160210
  Receipt Date: 20160210
  Transmission Date: 20160526
  Serious: Yes (Other)
  Sender: FDA-Public Use
  Company Number: CA-PFIZER INC-2016067891

PATIENT
  Sex: Female

DRUGS (3)
  1. OXYNEO [Suspect]
     Active Substance: OXYCODONE
     Dosage: UNK
  2. VARENICLINE TARTRATE [Suspect]
     Active Substance: VARENICLINE TARTRATE
     Dosage: UNK
     Route: 065
  3. NAPROXEN. [Suspect]
     Active Substance: NAPROXEN
     Dosage: UNK

REACTIONS (5)
  - Drug hypersensitivity [Unknown]
  - Constipation [Unknown]
  - Irritability [Unknown]
  - Irritable bowel syndrome [Unknown]
  - Swelling [Unknown]
